FAERS Safety Report 5456119-X (Version None)
Quarter: 2007Q3

REPORT INFORMATION
  Report Type: 
  Country: None (occurrence: None)
  Receive Date: 20070918
  Receipt Date: 20070702
  Transmission Date: 20080115
  Serious: Yes (Other)
  Sender: FDA-Public Use
  Company Number: US-ASTRAZENECA-2006UW23057

PATIENT
  Age: 16635 Day
  Sex: Male
  Weight: 68.6 kg

DRUGS (2)
  1. SEROQUEL [Suspect]
     Route: 048
     Dates: start: 20010101, end: 20050101
  2. ZYPREXA [Concomitant]

REACTIONS (1)
  - PANCREATITIS [None]
